FAERS Safety Report 9719932 (Version 1)
Quarter: 2013Q4

REPORT INFORMATION
  Report Type: Spontaneous
  Country: US (occurrence: US)
  Receive Date: 20131128
  Receipt Date: 20131128
  Transmission Date: 20140711
  Serious: Yes (Hospitalization)
  Sender: FDA-Public Use
  Company Number: US-JNJFOC-20131111649

PATIENT
  Age: 58 Year
  Sex: Male

DRUGS (1)
  1. ZYTIGA [Suspect]
     Indication: PROSTATE CANCER
     Dosage: 250MGX4
     Route: 048
     Dates: start: 20130703, end: 20130719

REACTIONS (4)
  - Pancreatitis [Unknown]
  - Abdominal discomfort [Unknown]
  - Nausea [Unknown]
  - Gallbladder disorder [Unknown]
